FAERS Safety Report 8582064-7 (Version None)
Quarter: 2012Q3

REPORT INFORMATION
  Report Type: 
  Country: None (occurrence: None)
  Receive Date: 20120809
  Receipt Date: 20120809
  Transmission Date: 20120928
  Serious: Yes (Other)
  Sender: FDA-Public Use
  Company Number: US-PFIZER INC-2012184484

PATIENT
  Age: 41 Year
  Sex: Female
  Weight: 74.83 kg

DRUGS (2)
  1. THYROID TAB [Concomitant]
     Indication: HYPOTHYROIDISM
     Dosage: 60 MG, 1X/DAY
  2. TOVIAZ [Suspect]
     Indication: BLADDER DISORDER
     Dosage: 4 MG, 1X/DAY
     Dates: start: 20120719

REACTIONS (1)
  - SOMNOLENCE [None]
